FAERS Safety Report 6916258-0 (Version None)
Quarter: 2010Q3

REPORT INFORMATION
  Report Type: 
  Country: None (occurrence: None)
  Receive Date: 20100805
  Receipt Date: 20100721
  Transmission Date: 20110219
  Serious: Yes (Hospitalization)
  Sender: FDA-Public Use
  Company Number: WAES  1007USA02496

PATIENT
  Age: 54 Year
  Sex: Female
  Weight: 113.8529 kg

DRUGS (11)
  1. CAP VORINOSTAT UNK [Suspect]
     Indication: BREAST CANCER
     Dosage: 300 MG DAILY PO
     Route: 048
     Dates: start: 20100712, end: 20100716
  2. IXABEPILONE UNK [Suspect]
     Indication: BREAST CANCER
     Dosage: 32 MG/M2[2]/Q3W/IV
     Route: 042
     Dates: start: 20100713
  3. LASIX [Concomitant]
  4. SYNTHROID [Concomitant]
  5. ULTRAM [Concomitant]
  6. ZANTAC [Concomitant]
  7. ZOCOR [Concomitant]
  8. ATENOLOL [Concomitant]
  9. IRON (UNSPECIFIED) [Concomitant]
  10. POTASSIUM (UNSPECIFIED) [Concomitant]
  11. VITAMIN B (UNSPECIFIED) [Concomitant]

REACTIONS (3)
  - CHILLS [None]
  - DEVICE RELATED INFECTION [None]
  - PYREXIA [None]
